FAERS Safety Report 4838252-6 (Version None)
Quarter: 2005Q4

REPORT INFORMATION
  Report Type: 
  Country: None (occurrence: None)
  Receive Date: 20051128
  Receipt Date: 20051117
  Transmission Date: 20060501
  Serious: Yes (Death)
  Sender: FDA-Public Use
  Company Number: NO-MERCK-0511NOR00025

PATIENT
  Age: 70 Year
  Sex: Male

DRUGS (5)
  1. VIOXX [Suspect]
     Indication: ANKYLOSING SPONDYLITIS
     Route: 048
     Dates: start: 20000802, end: 20010420
  2. VIOXX [Suspect]
     Route: 048
     Dates: start: 20010421, end: 20010422
  3. METHOTREXATE [Concomitant]
     Route: 048
     Dates: start: 20000801, end: 20001201
  4. METHOTREXATE [Concomitant]
     Route: 048
     Dates: start: 20001201
  5. FOLIC ACID [Concomitant]
     Route: 048

REACTIONS (6)
  - BLOOD CREATININE INCREASED [None]
  - BLOOD URIC ACID INCREASED [None]
  - DEATH [None]
  - FALL [None]
  - OSTEOARTHRITIS [None]
  - PROTEIN URINE PRESENT [None]
